FAERS Safety Report 5970413-5 (Version None)
Quarter: 2008Q4

REPORT INFORMATION
  Report Type: 
  Country: None (occurrence: None)
  Receive Date: 20081126
  Receipt Date: 20081119
  Transmission Date: 20090506
  Serious: Yes (Other)
  Sender: FDA-Public Use
  Company Number: JP-PFIZER INC-2008098917

PATIENT
  Sex: Female

DRUGS (2)
  1. DEPO-PROVERA SUSPENSION/INJ [Suspect]
     Indication: UTERINE CANCER
     Dosage: DAILY DOSE:600MG
  2. DEPO-PROVERA SUSPENSION/INJ [Suspect]
     Indication: DISEASE RECURRENCE

REACTIONS (1)
  - LACUNAR INFARCTION [None]
